FAERS Safety Report 20940760 (Version 2)
Quarter: 2022Q3

REPORT INFORMATION
  Report Type: Report from Study
  Country: LB (occurrence: LB)
  Receive Date: 20220609
  Receipt Date: 20220712
  Transmission Date: 20221027
  Serious: Yes (Hospitalization, Other)
  Sender: FDA-Public Use
  Company Number: LB-NOVARTISPH-NVSC2022LB132169

PATIENT
  Age: 33 Year
  Sex: Female

DRUGS (2)
  1. GILENYA [Suspect]
     Active Substance: FINGOLIMOD HYDROCHLORIDE
     Indication: Multiple sclerosis
     Dosage: 0.5 MG
     Route: 048
     Dates: start: 20190507, end: 202204
  2. VITAMIN D NOS [Concomitant]
     Active Substance: VITAMIN D NOS
     Indication: Product used for unknown indication
     Dosage: UNK
     Route: 065

REACTIONS (4)
  - Gait disturbance [Recovered/Resolved]
  - Limb discomfort [Recovered/Resolved]
  - Multiple sclerosis relapse [Recovered/Resolved]
  - Product availability issue [Unknown]

NARRATIVE: CASE EVENT DATE: 20220606
